FAERS Safety Report 10234332 (Version 3)
Quarter: 2014Q3

REPORT INFORMATION
  Report Type: Report from Study
  Country: RU (occurrence: RU)
  Receive Date: 20140612
  Receipt Date: 20140806
  Transmission Date: 20150326
  Serious: Yes (Hospitalization)
  Sender: FDA-Public Use
  Company Number: RU-B.I. PHARMACEUTICALS,INC./RIDGEFIELD-2014-BI-25883BI

PATIENT
  Age: 61 Year
  Sex: Female
  Weight: 78 kg

DRUGS (5)
  1. PRADAXA [Suspect]
     Active Substance: DABIGATRAN ETEXILATE MESYLATE
     Indication: CEREBROVASCULAR ACCIDENT PROPHYLAXIS
     Dosage: 220 MG
     Route: 048
     Dates: start: 20131031, end: 20140608
  2. SOTALOL. [Concomitant]
     Active Substance: SOTALOL
     Indication: ARRHYTHMIA PROPHYLAXIS
     Dosage: 80 MG
     Route: 048
     Dates: start: 20131031
  3. LAPPACONITINE HYDROBROMIDE [Concomitant]
     Indication: ARRHYTHMIA PROPHYLAXIS
     Dosage: 37.5 MG
     Route: 048
     Dates: start: 20131031
  4. LISINOPRIL. [Concomitant]
     Active Substance: LISINOPRIL
     Indication: HYPERTENSION
     Dosage: 10 MG
     Route: 048
     Dates: start: 201311
  5. AMLODIPIN [Concomitant]
     Active Substance: AMLODIPINE BESYLATE
     Indication: HYPERTENSION
     Dosage: 5 MG
     Route: 048
     Dates: start: 201311

REACTIONS (2)
  - Nephrolithiasis [Recovered/Resolved with Sequelae]
  - Haemorrhage urinary tract [Recovered/Resolved with Sequelae]

NARRATIVE: CASE EVENT DATE: 20140607
